FAERS Safety Report 5358416-5 (Version None)
Quarter: 2007Q2

REPORT INFORMATION
  Report Type: 
  Country: None (occurrence: None)
  Receive Date: 20070615
  Receipt Date: 20070606
  Transmission Date: 20071010
  Serious: Yes (Other)
  Sender: FDA-Public Use
  Company Number: PHBS2007BR09658

PATIENT
  Age: 6 Year
  Sex: Male
  Weight: 21.4 kg

DRUGS (1)
  1. TRILEPTAL [Suspect]
     Indication: TUBEROUS SCLEROSIS
     Route: 048
     Dates: start: 20070531

REACTIONS (1)
  - CONVULSION [None]
